FAERS Safety Report 9925192 (Version 1)
Quarter: 2014Q1

REPORT INFORMATION
  Report Type: Spontaneous
  Country: US (occurrence: None)
  Receive Date: 20140225
  Receipt Date: 20140225
  Transmission Date: 20141002
  Serious: Yes (Other)
  Sender: FDA-Public Use
  Company Number: None

PATIENT
  Age: 51 Year
  Sex: Female

DRUGS (3)
  1. XELODA [Suspect]
     Indication: BREAST CANCER
  2. ABRAXANE [Suspect]
     Indication: BREAST CANCER METASTATIC
  3. HALAVEN [Concomitant]

REACTIONS (2)
  - Neoplasm progression [None]
  - Drug effect decreased [None]
